FAERS Safety Report 7388730-3 (Version None)
Quarter: 2011Q1

REPORT INFORMATION
  Report Type: 
  Country: None (occurrence: None)
  Receive Date: 20110324
  Receipt Date: 20110315
  Transmission Date: 20110831
  Serious: Yes (Death)
  Sender: FDA-Public Use
  Company Number: 861636

PATIENT
  Age: 55 Year
  Sex: Female

DRUGS (4)
  1. CYTARABINE [Suspect]
     Indication: ACUTE MYELOMONOCYTIC LEUKAEMIA
  2. GRANULOCYTE COLONY STIMULATING FACTOR [Suspect]
     Indication: FEBRILE NEUTROPENIA
  3. ANTIBOTICS [Concomitant]
  4. IDARUBICIN HCL [Suspect]
     Indication: ACUTE MYELOMONOCYTIC LEUKAEMIA

REACTIONS (9)
  - DYSPNOEA [None]
  - ACUTE MYELOID LEUKAEMIA [None]
  - FEBRILE NEUTROPENIA [None]
  - PNEUMONIA [None]
  - WEIGHT DECREASED [None]
  - GINGIVAL HYPERTROPHY [None]
  - SEPSIS [None]
  - MYELODYSPLASTIC SYNDROME [None]
  - DIZZINESS [None]
